FAERS Safety Report 4821931-4 (Version None)
Quarter: 2005Q4

REPORT INFORMATION
  Report Type: 
  Country: None (occurrence: None)
  Receive Date: 20051103
  Receipt Date: 20051021
  Transmission Date: 20060501
  Serious: Yes (Other)
  Sender: FDA-Public Use
  Company Number: 2005145049

PATIENT
  Sex: Female

DRUGS (1)
  1. BENYLIN (DEXTROMETHORPHAN) [Suspect]
     Indication: EMOTIONAL DISTRESS
     Dosage: 1 BOTTLE ONCE; ORAL
     Route: 048

REACTIONS (3)
  - ABDOMINAL PAIN UPPER [None]
  - CRYING [None]
  - INTENTIONAL OVERDOSE [None]
